FAERS Safety Report 17540637 (Version 2)
Quarter: 2020Q2

REPORT INFORMATION
  Report Type: Report from Study
  Country: US (occurrence: US)
  Receive Date: 20200313
  Receipt Date: 20200408
  Transmission Date: 20200713
  Serious: Yes (Hospitalization, Other)
  Sender: FDA-Public Use
  Company Number: US-AGIOS-2002US01693

PATIENT

DRUGS (2)
  1. TIBSOVO [Suspect]
     Active Substance: IVOSIDENIB
     Indication: CHOLANGIOCARCINOMA
  2. TIBSOVO [Suspect]
     Active Substance: IVOSIDENIB
     Indication: CHRONIC LYMPHOCYTIC LEUKAEMIA
     Dosage: 250MG, 2 TABLETS (500MG) DAILY
     Route: 048
     Dates: start: 20200109, end: 20200213

REACTIONS (5)
  - Cholangiocarcinoma [Unknown]
  - Fluid retention [Unknown]
  - Off label use [Unknown]
  - Terminal state [Unknown]
  - Hospice care [Unknown]

NARRATIVE: CASE EVENT DATE: 20200109
